FAERS Safety Report 9880847 (Version 2)
Quarter: 2014Q1

REPORT INFORMATION
  Report Type: Spontaneous
  Country: US (occurrence: US)
  Receive Date: 20140207
  Receipt Date: 20140326
  Transmission Date: 20141002
  Serious: No
  Sender: FDA-Public Use
  Company Number: US-PFIZER INC-2014035259

PATIENT
  Age: 81 Year
  Sex: Male

DRUGS (7)
  1. GABAPENTIN [Suspect]
     Indication: NEURALGIA
     Dosage: UNK
  2. GABAPENTIN [Suspect]
     Dosage: 1200 MG, UNK
  3. GABAPENTIN [Suspect]
     Dosage: 1500 MG, UNK
  4. GABAPENTIN [Suspect]
     Dosage: 600 MG, UNK
  5. CELEBREX [Concomitant]
     Indication: ARTHRITIS
     Dosage: 200 MG, 1X/DAY
  6. MORPHINE SULFATE [Concomitant]
     Indication: BACK PAIN
     Dosage: 30 MG (IMMEDIATE-RELEASE), 3X/DAY
  7. MORPHINE SULFATE [Concomitant]
     Indication: BACK PAIN
     Dosage: 30 MG (LONG- ACTING), 3X/DAY

REACTIONS (2)
  - Drug ineffective [Unknown]
  - Somnolence [Unknown]
